FAERS Safety Report 10120870 (Version 1)
Quarter: 2014Q2

REPORT INFORMATION
  Report Type: Spontaneous
  Country: CA (occurrence: CA)
  Receive Date: 20140425
  Receipt Date: 20140425
  Transmission Date: 20141212
  Serious: Yes (Death)
  Sender: FDA-Public Use
  Company Number: CA-ASTRAZENECA-2014SE27975

PATIENT
  Sex: Male

DRUGS (1)
  1. SEROQUEL [Suspect]
     Indication: BEHAVIOURAL AND PSYCHIATRIC SYMPTOMS OF DEMENTIA
     Route: 048

REACTIONS (1)
  - Death [Fatal]
